FAERS Safety Report 21073590 (Version 1)
Quarter: 2022Q3

REPORT INFORMATION
  Report Type: Spontaneous
  Country: None (occurrence: US)
  Receive Date: 20220713
  Receipt Date: 20220713
  Transmission Date: 20221027
  Serious: Yes (Death)
  Sender: FDA-Public Use
  Company Number: US-GenBioPro-2130806

PATIENT
  Sex: Female

DRUGS (2)
  1. MIFEPRISTONE [Suspect]
     Active Substance: MIFEPRISTONE
     Indication: Abortion induced
     Route: 048
     Dates: start: 20220525, end: 20220525
  2. MISOPROSTOL [Interacting]
     Active Substance: MISOPROSTOL
     Route: 002
     Dates: start: 20220526

REACTIONS (1)
  - Toxic shock syndrome [Fatal]

NARRATIVE: CASE EVENT DATE: 20220602
